FAERS Safety Report 9521579 (Version 1)
Quarter: 2013Q1

REPORT INFORMATION
  Report Type: Spontaneous
  Country: US (occurrence: None)
  Receive Date: 20130305
  Receipt Date: 20130305
  Transmission Date: 20140127
  Serious: Yes (Hospitalization)
  Sender: FDA-Public Use
  Company Number: 163-21880-12072157

PATIENT
  Age: 81 Year
  Sex: Male
  Weight: 65.32 kg

DRUGS (16)
  1. REVLIMID (LENALIDOMIDE) (CAPSULES) [Suspect]
     Indication: MYELODYSPLASTIC SYNDROME
     Dosage: 10 MG, 21 IN 28 D, PO
     Route: 048
     Dates: start: 20111202
  2. ACARBOSE (ACARBOSE) (UNKNOWN) [Concomitant]
  3. ALLOPURINOL (ALLOPURINOL) (UNKNOWN) [Concomitant]
  4. AMLODIPINE (AMLODIPINE) (UNKNOWN) [Concomitant]
  5. BUMETANIDE (BUMETANIDE) (UNKNOWN) [Concomitant]
  6. COLCRYS (COLCHICINE) (UNKNOWN) [Concomitant]
  7. COREG (CARVEDILOL) (UNKNOWN) [Concomitant]
  8. FENTANYL (FENTANYL) (UNKNOWN) (FENTANYL) [Concomitant]
  9. FOLIC ACID (FOLIC ACID) (UNKNOWN) [Concomitant]
  10. HYDROCODONE (HYDROCODONE) (UNKNOWN) [Concomitant]
  11. ISOSORBIDE (ISOSORBIDE) (UNKNOWN) [Concomitant]
  12. LANTUS (INSULIN GLARGINE) (UNKNOWN) [Concomitant]
  13. LEVOTHYROXINE (LEVOTHYROXINE) (UNKNOWN) [Concomitant]
  14. NITROGLYCERINE-SL (UNKNOWN) [Concomitant]
  15. NYSTATIN-SWISH (UNKNOWN) [Concomitant]
  16. QUALAQUIN (QUININE SULFATE) (UNKNOWN)? [Concomitant]

REACTIONS (2)
  - Cardiac failure congestive [None]
  - Renal failure [None]
